FAERS Safety Report 4282248-2 (Version None)
Quarter: 2004Q1

REPORT INFORMATION
  Report Type: 
  Country: None (occurrence: None)
  Receive Date: 20040112
  Receipt Date: 20031024
  Transmission Date: 20041129
  Serious: Yes (Hospitalization)
  Sender: FDA-Public Use
  Company Number: SP-199700216

PATIENT
  Age: 48 Year
  Sex: Male

DRUGS (2)
  1. REOPRO [Suspect]
     Indication: CORONARY ANGIOPLASTY
     Dosage: INTRAVENOUS DRIP
     Route: 041
     Dates: start: 19960830
  2. HEPARIN [Suspect]
     Dates: start: 19960830

REACTIONS (2)
  - HAEMATOMA [None]
  - THROMBOCYTOPENIA [None]
